FAERS Safety Report 23131737 (Version 1)
Quarter: 2023Q4

REPORT INFORMATION
  Report Type: Spontaneous
  Country: US (occurrence: US)
  Receive Date: 20231031
  Receipt Date: 20231031
  Transmission Date: 20240110
  Serious: No
  Sender: FDA-Public Use
  Company Number: US-BAUSCHBL-2023BNL010593

PATIENT
  Age: 37 Year
  Sex: Female

DRUGS (1)
  1. MIEBO [Suspect]
     Active Substance: PERFLUOROHEXYLOCTANE
     Indication: Dry eye
     Dosage: ONE DROP IN EACH EYE
     Route: 065
     Dates: start: 20231009, end: 20231010

REACTIONS (1)
  - Headache [Unknown]

NARRATIVE: CASE EVENT DATE: 20231010
